FAERS Safety Report 9898410 (Version 3)
Quarter: 2014Q2

REPORT INFORMATION
  Report Type: Report from Study
  Country: US (occurrence: US)
  Receive Date: 20140214
  Receipt Date: 20140619
  Transmission Date: 20141212
  Serious: Yes (Other)
  Sender: FDA-Public Use
  Company Number: US-ALEXION PHARMACEUTICALS INC.-A201202753

PATIENT
  Sex: 0

DRUGS (1)
  1. SOLIRIS [Suspect]
     Indication: HAEMOLYTIC URAEMIC SYNDROME
     Dosage: UNK
     Route: 042

REACTIONS (5)
  - Dialysis [Unknown]
  - Complications of transplanted kidney [Unknown]
  - Therapeutic response decreased [Not Recovered/Not Resolved]
  - Thrombotic microangiopathy [Unknown]
  - Drug effect decreased [Unknown]
